FAERS Safety Report 18454116 (Version 1)
Quarter: 2020Q4

REPORT INFORMATION
  Report Type: Report from Study
  Country: US (occurrence: US)
  Receive Date: 20201102
  Receipt Date: 20201102
  Transmission Date: 20210114
  Serious: Yes (Hospitalization, Other)
  Sender: FDA-Public Use
  Company Number: US-JNJFOC-20201038045

PATIENT
  Age: 54 Year
  Sex: Male

DRUGS (4)
  1. HYDROCODONE/ACETAMINOPHEN [Concomitant]
     Active Substance: ACETAMINOPHEN\HYDROCODONE
  2. SIMPONI [Suspect]
     Active Substance: GOLIMUMAB
     Indication: ANKYLOSING SPONDYLITIS
     Route: 058
     Dates: start: 20190711
  3. DIAZEPAM. [Concomitant]
     Active Substance: DIAZEPAM
  4. WARFARIN [Concomitant]
     Active Substance: WARFARIN

REACTIONS (4)
  - Psoriatic arthropathy [Not Recovered/Not Resolved]
  - Depression [Unknown]
  - Neoplasm malignant [Unknown]
  - Psoriasis [Unknown]
